FAERS Safety Report 4984459-7 (Version None)
Quarter: 2006Q2

REPORT INFORMATION
  Report Type: 
  Country: None (occurrence: None)
  Receive Date: 20060427
  Receipt Date: 20060405
  Transmission Date: 20061013
  Serious: Yes (Death, Hospitalization)
  Sender: FDA-Public Use
  Company Number: IE-GLAXOSMITHKLINE-B0420165A

PATIENT
  Age: 29 Year
  Sex: Male

DRUGS (1)
  1. ZOVIRAX [Suspect]

REACTIONS (2)
  - DISSEMINATED INTRAVASCULAR COAGULATION [None]
  - RASH [None]
